FAERS Safety Report 6538725-4 (Version None)
Quarter: 2010Q1

REPORT INFORMATION
  Report Type: 
  Country: None (occurrence: None)
  Receive Date: 20100114
  Receipt Date: 20100114
  Transmission Date: 20100710
  Serious: Yes (Other)
  Sender: FDA-Public Use
  Company Number: None

PATIENT
  Age: 76 Year
  Sex: Male

DRUGS (8)
  1. SERTRALINE HCL [Suspect]
     Indication: DEPRESSED MOOD
     Dosage: 50 MG, OD, ORAL
     Route: 048
  2. PRAMIPEXOLE DIHYDROCHLORIDE [Suspect]
     Indication: PARKINSON'S DISEASE
     Dosage: ORAL
     Route: 048
  3. QUININE [Concomitant]
  4. CIMETIDINE [Concomitant]
  5. FRUSEMIDE (FRUSEMIDE) [Concomitant]
  6. MADOPAR (BENSERAZIDE HYDROCHLORIDE + LEVODOPA) [Concomitant]
  7. SPIRONOLACTONE [Concomitant]
  8. ZOMORPH (MORPHINE SULPHATE) [Concomitant]

REACTIONS (1)
  - VITREOUS FLOATERS [None]
